FAERS Safety Report 22531348 (Version 1)
Quarter: 2023Q2

REPORT INFORMATION
  Report Type: Spontaneous
  Country: DK (occurrence: DK)
  Receive Date: 20230607
  Receipt Date: 20230607
  Transmission Date: 20230721
  Serious: Yes (Life-Threatening, Hospitalization)
  Sender: FDA-Public Use
  Company Number: None

PATIENT
  Age: 53 Year
  Sex: Female
  Weight: 75 kg

DRUGS (6)
  1. CLOPIDOGREL [Suspect]
     Active Substance: CLOPIDOGREL BISULFATE
     Indication: Thrombosis prophylaxis
     Dosage: STRENGTH: 75 MG
     Dates: start: 20220406, end: 20230414
  2. ATORVASTATIN [Concomitant]
     Active Substance: ATORVASTATIN
     Indication: Hypercholesterolaemia
     Dates: start: 20220609
  3. BROMAZEPAM [Concomitant]
     Active Substance: BROMAZEPAM
     Indication: Sedative therapy
     Dates: start: 20190617
  4. GABAPENTIN [Concomitant]
     Active Substance: GABAPENTIN
     Indication: Neuralgia
     Dates: start: 20181012
  5. RIVOTRIL [Concomitant]
     Active Substance: CLONAZEPAM
     Indication: Epilepsy
     Dates: start: 20210209
  6. METHADONE [Concomitant]
     Active Substance: METHADONE HYDROCHLORIDE
     Indication: Drug dependence
     Dates: start: 20150805

REACTIONS (6)
  - Subdural haemorrhage [Recovering/Resolving]
  - Dyspnoea [Unknown]
  - Malaise [Unknown]
  - Subarachnoid haemorrhage [Recovering/Resolving]
  - Syncope [Recovered/Resolved]
  - Cerebral haemorrhage [Recovering/Resolving]

NARRATIVE: CASE EVENT DATE: 20230414
